FAERS Safety Report 6917037-0 (Version None)
Quarter: 2010Q3

REPORT INFORMATION
  Report Type: 
  Country: None (occurrence: None)
  Receive Date: 20100810
  Receipt Date: 20100803
  Transmission Date: 20110219
  Serious: Yes (Other)
  Sender: FDA-Public Use
  Company Number: A0873770A

PATIENT
  Age: 56 Year
  Sex: Male

DRUGS (15)
  1. VOTRIENT [Suspect]
     Dosage: 800MG PER DAY
     Route: 048
     Dates: start: 20100601, end: 20100803
  2. SYNTHROID [Concomitant]
  3. LIDODERM [Concomitant]
  4. ZOFRAN [Concomitant]
  5. ATIVAN [Concomitant]
  6. NEURONTIN [Concomitant]
  7. ZOLOFT [Concomitant]
  8. LISINOPRIL [Concomitant]
  9. XANAX [Concomitant]
  10. PERCOCET [Concomitant]
  11. FLEXERIL [Concomitant]
  12. MULTI-VITAMIN [Concomitant]
  13. ZINC [Concomitant]
  14. VITAMIN D [Concomitant]
  15. TAGAMET [Concomitant]

REACTIONS (2)
  - FEELING ABNORMAL [None]
  - HEPATIC ENZYME INCREASED [None]
